FAERS Safety Report 21474137 (Version 2)
Quarter: 2022Q4

REPORT INFORMATION
  Report Type: Spontaneous
  Country: US (occurrence: US)
  Receive Date: 20221018
  Receipt Date: 20221020
  Transmission Date: 20230113
  Serious: Yes (Death)
  Sender: FDA-Public Use
  Company Number: US-PROCTER+GAMBLE-PH22010386

PATIENT
  Age: 14 Year
  Sex: Female

DRUGS (3)
  1. DIPHENHYDRAMINE HYDROCHLORIDE [Suspect]
     Active Substance: DIPHENHYDRAMINE HYDROCHLORIDE
     Dosage: UNK
     Route: 048
  2. CAFFEINE [Concomitant]
     Active Substance: CAFFEINE
     Dosage: UNK
  3. COTININE [Concomitant]
     Active Substance: COTININE
     Dosage: UNK

REACTIONS (6)
  - Pulmonary congestion [Fatal]
  - Pulmonary oedema [Fatal]
  - Cyanosis [Fatal]
  - Lip dry [Fatal]
  - Skin abrasion [Fatal]
  - Toxicity to various agents [Fatal]
